FAERS Safety Report 7287606-X (Version None)
Quarter: 2011Q1

REPORT INFORMATION
  Report Type: 
  Country: None (occurrence: None)
  Receive Date: 20110211
  Receipt Date: 20110202
  Transmission Date: 20110831
  Serious: Yes (Other)
  Sender: FDA-Public Use
  Company Number: CA-JNJFOC-20100407211

PATIENT
  Sex: Female
  Weight: 112 kg

DRUGS (5)
  1. REMICADE [Suspect]
     Route: 042
  2. IMURAN [Concomitant]
  3. REMICADE [Suspect]
     Indication: CROHN'S DISEASE
     Route: 042
  4. CYCLOBENZAPRINE [Concomitant]
  5. DIOVAN [Concomitant]

REACTIONS (2)
  - SKIN LESION [None]
  - DRUG INEFFECTIVE [None]
